FAERS Safety Report 4566368-0 (Version None)
Quarter: 2005Q1

REPORT INFORMATION
  Report Type: 
  Country: None (occurrence: None)
  Receive Date: 20050126
  Receipt Date: 20050126
  Transmission Date: 20050727
  Serious: Yes (Other)
  Sender: FDA-Public Use
  Company Number: None

PATIENT
  Age: 58 Year
  Sex: Male
  Weight: 84.4 kg

DRUGS (4)
  1. FOSINOPRIL [Suspect]
  2. SIMVASTATIN [Concomitant]
  3. VITAMIN B COMPLEX/ VITAMIN C [Concomitant]
  4. VITAMIN E [Concomitant]

REACTIONS (1)
  - COUGH [None]
